FAERS Safety Report 8783238 (Version 1)
Quarter: 2012Q4

REPORT INFORMATION
  Report Type: 
  Country: GB (occurrence: GB)
  Receive Date: 20120913
  Receipt Date: 20120913
  Transmission Date: 20130627
  Serious: Yes (Other)
  Sender: FDA-Public Use
  Company Number: GB-US-EMD SERONO, INC.-7159822

PATIENT
  Age: 50 Year
  Sex: Female

DRUGS (2)
  1. REBIF [Suspect]
     Indication: PRODUCT USED FOR UNKNOWN INDICATION
     Route: 058
     Dates: start: 201109
  2. METFORMIN [Suspect]
     Indication: DIABETES MELLITUS
     Route: 048
     Dates: start: 20120805

REACTIONS (4)
  - Diabetes mellitus [Not Recovered/Not Resolved]
  - Incontinence [Not Recovered/Not Resolved]
  - Malaise [Not Recovered/Not Resolved]
  - Fatigue [Not Recovered/Not Resolved]
